FAERS Safety Report 22519464 (Version 1)
Quarter: 2023Q2

REPORT INFORMATION
  Report Type: Spontaneous
  Country: US (occurrence: None)
  Receive Date: 20230602
  Receipt Date: 20230602
  Transmission Date: 20230722
  Serious: Yes (Other)
  Sender: FDA-Public Use
  Company Number: None

PATIENT
  Age: 70 Year
  Sex: Female
  Weight: 56.25 kg

DRUGS (3)
  1. ACCLEAN CHLORHEXIDINE GLUCONATE 0.12% ORAL RINSE [Suspect]
     Active Substance: CHLORHEXIDINE GLUCONATE
     Indication: Gingival disorder
     Dosage: FREQUENCY : AT BEDTIME;?
     Route: 048
  2. VITAMINS [Concomitant]
     Active Substance: VITAMINS
  3. Fish oil (omega 3) [Concomitant]

REACTIONS (8)
  - Decreased appetite [None]
  - Asthenia [None]
  - Nausea [None]
  - Pain [None]
  - Tongue discolouration [None]
  - Illness [None]
  - Impaired driving ability [None]
  - Dysgeusia [None]

NARRATIVE: CASE EVENT DATE: 20230524
